FAERS Safety Report 19605500 (Version 3)
Quarter: 2021Q3

REPORT INFORMATION
  Report Type: Spontaneous
  Country: GB (occurrence: GB)
  Receive Date: 20210723
  Receipt Date: 20210820
  Transmission Date: 20211014
  Serious: Yes (Hospitalization)
  Sender: FDA-Public Use
  Company Number: GB-TEVA-2021-GB-1934254

PATIENT
  Age: 65 Year
  Sex: Female
  Weight: 80 kg

DRUGS (18)
  1. BEVACIZUMAB. [Suspect]
     Active Substance: BEVACIZUMAB
     Indication: TRANSITIONAL CELL CARCINOMA
     Dosage: 1100 MG
     Route: 042
     Dates: start: 20200210
  2. PARACETAMOL [Concomitant]
     Active Substance: ACETAMINOPHEN
     Indication: PAIN
     Dosage: UNK
     Route: 065
  3. ATEZOLIZUMAB. [Suspect]
     Active Substance: ATEZOLIZUMAB
     Indication: TRANSITIONAL CELL CARCINOMA
     Dosage: 1200 MG, EVERY 3 WEEKS (SUBSEQUENTLY, DOSE ON 09MAR2020, 06APR2020 AND 27APR2020, 08JUN2020 AND 18MA
     Route: 042
     Dates: start: 20200210
  4. ATEZOLIZUMAB. [Suspect]
     Active Substance: ATEZOLIZUMAB
     Indication: NON-SMALL CELL LUNG CANCER
     Route: 065
  5. DEXAMETHASONE. [Concomitant]
     Active Substance: DEXAMETHASONE
     Indication: HEADACHE
     Dosage: UNK
     Dates: start: 20200625
  6. PACLITAXEL. [Suspect]
     Active Substance: PACLITAXEL
     Indication: TRANSITIONAL CELL CARCINOMA
     Dosage: 378 MG
     Route: 065
     Dates: start: 20200427
  7. ACICLOVIR [Concomitant]
     Active Substance: ACYCLOVIR
     Indication: PRODUCT USED FOR UNKNOWN INDICATION
     Dosage: UNK
     Route: 065
     Dates: start: 20200402, end: 20200404
  8. GELCLAIR [Concomitant]
     Indication: PRODUCT USED FOR UNKNOWN INDICATION
     Dosage: UNK
     Dates: start: 20200407, end: 20200409
  9. OXETACAINE [Concomitant]
     Active Substance: OXETHAZAINE
     Indication: MUCOSAL INFLAMMATION
     Dosage: UNK
     Route: 065
     Dates: start: 20200221
  10. BUSCOPAN [Concomitant]
     Active Substance: BUTYLSCOPOLAMINE BROMIDE
     Indication: PAIN
     Dosage: UNK
     Route: 065
     Dates: start: 20200214, end: 20200222
  11. ORAMORPH [Concomitant]
     Active Substance: MORPHINE SULFATE
     Indication: PAIN
     Dosage: UNK
     Route: 065
  12. DIHYDROCODEINE TARTRATE [Suspect]
     Active Substance: DIHYDROCODEINE BITARTRATE
     Indication: VISUAL IMPAIRMENT
     Dosage: 1 DOSAGE FORMS DAILY; UNKNOWN
     Route: 065
  13. CHLORHEXIDINE [Concomitant]
     Active Substance: CHLORHEXIDINE
     Indication: HIATUS HERNIA
     Dosage: UNK
     Route: 065
  14. METOCLOPRAMIDE. [Concomitant]
     Active Substance: METOCLOPRAMIDE
     Indication: PAIN
     Dosage: UNK
     Route: 065
     Dates: start: 20200214, end: 20200222
  15. CARBOPLATIN. [Suspect]
     Active Substance: CARBOPLATIN
     Dosage: UNKNOWN
     Route: 042
  16. CARBOPLATIN. [Suspect]
     Active Substance: CARBOPLATIN
     Indication: TRANSITIONAL CELL CARCINOMA
     Dosage: 630 MG (INFUSION)
     Route: 042
     Dates: start: 20200210
  17. LANSOPRAZOLE. [Concomitant]
     Active Substance: LANSOPRAZOLE
     Indication: PRODUCT USED FOR UNKNOWN INDICATION
     Dosage: UNK
     Route: 065
  18. NITROFURANTOIN. [Concomitant]
     Active Substance: NITROFURANTOIN
     Indication: HIATUS HERNIA
     Dosage: UNKNOWN
     Route: 065
     Dates: start: 20200204

REACTIONS (3)
  - Constipation [Not Recovered/Not Resolved]
  - Abdominal pain [Not Recovered/Not Resolved]
  - Abdominal pain [Recovered/Resolved]

NARRATIVE: CASE EVENT DATE: 20200214
